FAERS Safety Report 23088414 (Version 2)
Quarter: 2023Q4

REPORT INFORMATION
  Report Type: Spontaneous
  Country: FI (occurrence: FI)
  Receive Date: 20231020
  Receipt Date: 20231027
  Transmission Date: 20240109
  Serious: Yes (Other)
  Sender: FDA-Public Use
  Company Number: FI-009507513-2310FIN008323

PATIENT
  Sex: Male

DRUGS (2)
  1. PEMBROLIZUMAB [Suspect]
     Active Substance: PEMBROLIZUMAB
     Dosage: UNK
  2. PEMBROLIZUMAB [Suspect]
     Active Substance: PEMBROLIZUMAB
     Dosage: MAINTENANCE THERAPY: CYCLES 5-13
     Dates: start: 202204, end: 202212

REACTIONS (12)
  - Aspiration [Unknown]
  - Malignant neoplasm progression [Unknown]
  - Pneumonia [Unknown]
  - Pneumonia [Unknown]
  - Therapy partial responder [Unknown]
  - Lung opacity [Unknown]
  - Lung opacity [Unknown]
  - Lung opacity [Unknown]
  - Bronchial disorder [Unknown]
  - Pulmonary mass [Unknown]
  - Liver disorder [Unknown]
  - Inappropriate schedule of product administration [Unknown]

NARRATIVE: CASE EVENT DATE: 20220101
